FAERS Safety Report 12633322 (Version 2)
Quarter: 2016Q3

REPORT INFORMATION
  Report Type: Spontaneous
  Country: US (occurrence: US)
  Receive Date: 20160808
  Receipt Date: 20160808
  Transmission Date: 20161109
  Serious: No
  Sender: FDA-Public Use
  Company Number: US-BEH-2016060527

PATIENT
  Age: 69 Year
  Sex: Female
  Weight: 81 kg

DRUGS (35)
  1. ACETAMINOPHEN. [Concomitant]
     Active Substance: ACETAMINOPHEN
  2. L-M-X [Concomitant]
  3. VITAMIN D3 [Concomitant]
     Active Substance: CHOLECALCIFEROL
  4. NIACIN FLUSH-FREE [Concomitant]
  5. ANUSOL-HC [Concomitant]
  6. LIPITOR [Concomitant]
     Active Substance: ATORVASTATIN CALCIUM
  7. MULTIVITAMIN [Concomitant]
     Active Substance: VITAMINS
  8. DIPHENHYDRAMINE. [Concomitant]
     Active Substance: DIPHENHYDRAMINE
  9. ATORVASTATIN [Concomitant]
     Active Substance: ATORVASTATIN
  10. ALBUTEROL. [Concomitant]
     Active Substance: ALBUTEROL
  11. PROVENTIL [Concomitant]
     Active Substance: ALBUTEROL
  12. SUDAFED [Concomitant]
     Active Substance: PSEUDOEPHEDRINE HYDROCHLORIDE
  13. BIOTIN [Concomitant]
     Active Substance: BIOTIN
  14. AMBIEN CR [Concomitant]
     Active Substance: ZOLPIDEM TARTRATE
  15. METOPROLOL TARTRATE. [Concomitant]
     Active Substance: METOPROLOL TARTRATE
  16. EPIPEN [Concomitant]
     Active Substance: EPINEPHRINE
  17. FLUCONAZOLE. [Concomitant]
     Active Substance: FLUCONAZOLE
  18. RANITIDINE. [Concomitant]
     Active Substance: RANITIDINE
  19. LACTOBACILLUS ACIDOPHILUS\LACTOBACILLUS BULGARICUS [Concomitant]
     Active Substance: LACTOBACILLUS ACIDOPHILUS\LACTOBACILLUS DELBRUECKII SUBSP. BULGARICUS
  20. NEXIUM [Concomitant]
     Active Substance: ESOMEPRAZOLE MAGNESIUM
  21. TESTOSTERONE OINT [Concomitant]
  22. ACTOS [Concomitant]
     Active Substance: PIOGLITAZONE HYDROCHLORIDE
  23. FINASTERIDE. [Concomitant]
     Active Substance: FINASTERIDE
  24. VITAMIN B12 [Concomitant]
     Active Substance: CYANOCOBALAMIN
  25. HIZENTRA [Suspect]
     Active Substance: HUMAN IMMUNOGLOBULIN G
     Indication: ASTHMA
     Route: 058
  26. ALIGN [Concomitant]
     Active Substance: BIFIDOBACTERIUM LONGUM SUBSP. INFANTIS
  27. CLOBETASOL PROP [Concomitant]
  28. FLUOROMETHOLONE. [Concomitant]
     Active Substance: FLUOROMETHOLONE
  29. IPRAT-ALBUT [Concomitant]
  30. AMLODIPINE [Concomitant]
     Active Substance: AMLODIPINE BESYLATE
  31. DESONIDE. [Concomitant]
     Active Substance: DESONIDE
  32. HIZENTRA [Suspect]
     Active Substance: HUMAN IMMUNOGLOBULIN G
     Indication: TYPE 2 DIABETES MELLITUS
     Route: 058
  33. HIZENTRA [Suspect]
     Active Substance: HUMAN IMMUNOGLOBULIN G
     Indication: TYPE 2 DIABETES MELLITUS
     Route: 058
  34. DEX4 GLUCOSE [Concomitant]
  35. SALINE [Concomitant]
     Active Substance: SODIUM CHLORIDE

REACTIONS (1)
  - Urinary tract infection [Unknown]

NARRATIVE: CASE EVENT DATE: 20160101
